FAERS Safety Report 7389205-8 (Version None)
Quarter: 2011Q1

REPORT INFORMATION
  Report Type: 
  Country: None (occurrence: None)
  Receive Date: 20110324
  Receipt Date: 20110316
  Transmission Date: 20110831
  Serious: Yes (Hospitalization, Other)
  Sender: FDA-Public Use
  Company Number: 1000019025

PATIENT
  Age: 88 Year
  Sex: Female

DRUGS (7)
  1. LEXAPRO [Suspect]
     Indication: DEPRESSION
     Dosage: ORAL
     Route: 048
     Dates: start: 20100101
  2. TRANLORAZEPATE POTASSIUM) (CLORAZEPATE DIPOTASSIUM) [Concomitant]
  3. FOLIC ACID [Concomitant]
  4. SOLIRIS [Suspect]
     Indication: PAROXYSMAL NOCTURNAL HAEMOGLOBINURIA
     Dosage: 600  MG (600 MG,1 IN 1 1 WK), INTRAVENOUS (NOT OTHERWISE SPECIFIED); 900 MG (1 IN 2 WK),INTRAVENOUS
     Route: 042
     Dates: start: 20090310, end: 20090301
  5. ARIMIDEX (ANASTROZOLE) (ANASTROZOLE) [Concomitant]
  6. CENTRUM (MULTIVITAMIN) (MULTIVITAMIN) [Concomitant]
  7. LIPITOR [Concomitant]

REACTIONS (7)
  - SKIN EXFOLIATION [None]
  - HAEMORRHOIDS [None]
  - ERYTHEMA [None]
  - BREAST CANCER [None]
  - RECTAL HAEMORRHAGE [None]
  - ANAEMIA [None]
  - TINNITUS [None]
